FAERS Safety Report 25058900 (Version 1)
Quarter: 2025Q1

REPORT INFORMATION
  Report Type: Spontaneous
  Country: JP (occurrence: JP)
  Receive Date: 20250310
  Receipt Date: 20250310
  Transmission Date: 20250409
  Serious: Yes (Other)
  Sender: MYLAN
  Company Number: JP-MYLANLABS-2025M1018275

PATIENT
  Age: 52 Year
  Sex: Female

DRUGS (4)
  1. LYRICA [Suspect]
     Active Substance: PREGABALIN
     Indication: Oral pain
  2. OXYCODONE [Suspect]
     Active Substance: OXYCODONE
     Indication: Oral pain
  3. TRAMADOL [Suspect]
     Active Substance: TRAMADOL
     Indication: Oral pain
     Dosage: 160 MG PER DOSE
  4. PREGABALIN [Suspect]
     Active Substance: PREGABALIN
     Indication: Oral pain

REACTIONS (1)
  - Drug ineffective [Unknown]
